FAERS Safety Report 4319659-2 (Version None)
Quarter: 2004Q1

REPORT INFORMATION
  Report Type: 
  Country: None (occurrence: None)
  Receive Date: 20040319
  Receipt Date: 20040213
  Transmission Date: 20041129
  Serious: Yes (Other)
  Sender: FDA-Public Use
  Company Number: WAES 0402USA01147

PATIENT
  Sex: Male

DRUGS (5)
  1. LASIX [Suspect]
     Dates: start: 20040101
  2. LISINOPRIL [Suspect]
     Route: 048
     Dates: start: 20040101
  3. COZAAR [Suspect]
     Route: 048
     Dates: end: 20040101
  4. METOPROLOL [Concomitant]
  5. ACCUPRIL [Suspect]
     Dates: start: 20040101

REACTIONS (11)
  - BLOOD CREATININE INCREASED [None]
  - BLOOD IRON DECREASED [None]
  - BLOOD UREA INCREASED [None]
  - CARDIAC DISORDER [None]
  - DEHYDRATION [None]
  - DIARRHOEA [None]
  - HAEMOGLOBIN DECREASED [None]
  - IRON DEFICIENCY ANAEMIA [None]
  - MEDICATION ERROR [None]
  - PRURITUS GENERALISED [None]
  - RASH [None]
